FAERS Safety Report 6151476-3 (Version None)
Quarter: 2009Q2

REPORT INFORMATION
  Report Type: 
  Country: None (occurrence: None)
  Receive Date: 20090410
  Receipt Date: 20090407
  Transmission Date: 20091009
  Serious: Yes (Life-Threatening, Hospitalization)
  Sender: FDA-Public Use
  Company Number: FR-ASTRAZENECA-2009CG00643

PATIENT
  Age: 30277 Day
  Sex: Female

DRUGS (9)
  1. TENORMIN [Suspect]
     Route: 048
     Dates: end: 20090201
  2. EXELON [Suspect]
     Indication: DEMENTIA ALZHEIMER'S TYPE
     Route: 062
     Dates: end: 20090203
  3. EXELON [Suspect]
     Route: 062
     Dates: start: 20090204, end: 20090201
  4. LEVOTHYROXINE SODIUM [Concomitant]
  5. SPECIAFOLDINE [Concomitant]
  6. CERIS [Concomitant]
  7. DEPAMIDE [Concomitant]
  8. ROCEPHIN [Concomitant]
     Indication: ERYSIPELAS
  9. CALCIPARINE [Concomitant]
     Indication: THROMBOPHLEBITIS

REACTIONS (2)
  - SINUS ARRHYTHMIA [None]
  - VENTRICULAR ASYSTOLE [None]
